FAERS Safety Report 9215920 (Version 1)
Quarter: 2013Q2

REPORT INFORMATION
  Report Type: Spontaneous
  Country: FR (occurrence: None)
  Receive Date: 20130403
  Receipt Date: 20130403
  Transmission Date: 20140414
  Serious: Yes (Hospitalization)
  Sender: FDA-Public Use
  Company Number: NSR_01074_2013

PATIENT
  Age: 65 Year
  Sex: Female

DRUGS (1)
  1. ALLOPURINOL [Suspect]
     Indication: PRODUCT USED FOR UNKNOWN INDICATION

REACTIONS (5)
  - Cardiac failure [None]
  - Pneumonitis [None]
  - Renal failure [None]
  - Capillary leak syndrome [None]
  - Drug reaction with eosinophilia and systemic symptoms [None]
